FAERS Safety Report 25450009 (Version 1)
Quarter: 2025Q2

REPORT INFORMATION
  Report Type: Spontaneous
  Country: JP (occurrence: JP)
  Receive Date: 20250618
  Receipt Date: 20250618
  Transmission Date: 20250716
  Serious: Yes (Other)
  Sender: GLAXOSMITHKLINE
  Company Number: JP-GSKNCCC-Case-02379814_AE-99340

PATIENT

DRUGS (1)
  1. NUCALA [Suspect]
     Active Substance: MEPOLIZUMAB
     Indication: Eosinophilia
     Dosage: UNK UNK, Q4W

REACTIONS (8)
  - Anaphylactic reaction [Unknown]
  - Angina pectoris [Unknown]
  - Abdominal pain [Recovering/Resolving]
  - Rash [Recovering/Resolving]
  - Asthma [Unknown]
  - Hypersensitivity [Unknown]
  - Product use in unapproved indication [Unknown]
  - Off label use [Unknown]
